FAERS Safety Report 21594137 (Version 2)
Quarter: 2025Q1

REPORT INFORMATION
  Report Type: Spontaneous
  Country: US (occurrence: US)
  Receive Date: 20221115
  Receipt Date: 20250324
  Transmission Date: 20250409
  Serious: Yes (Other)
  Sender: PFIZER
  Company Number: US-PFIZER INC-PV202200103590

PATIENT
  Age: 52 Year
  Sex: Male

DRUGS (2)
  1. INLYTA [Suspect]
     Active Substance: AXITINIB
     Dosage: 5MG DOSAGE ONE TABLET EVERY 12 HOURS (TOTAL OF 10 MG DAILY)
  2. INLYTA [Suspect]
     Active Substance: AXITINIB
     Dosage: DECREASED TO 1 MG DOSAGE 3 TABLETS TWICE DAILY (TOTAL OF 6 MG DAILY)

REACTIONS (6)
  - Thrombosis [Unknown]
  - Pneumonia [Unknown]
  - Weight decreased [Unknown]
  - Throat lesion [Unknown]
  - Feeding disorder [Unknown]
  - Decreased appetite [Unknown]
